FAERS Safety Report 15225714 (Version 2)
Quarter: 2018Q3

REPORT INFORMATION
  Report Type: Spontaneous
  Country: US (occurrence: US)
  Receive Date: 20180801
  Receipt Date: 20180827
  Transmission Date: 20181010
  Serious: No
  Sender: FDA-Public Use
  Company Number: US-PFIZER INC-2018011768

PATIENT
  Age: 63 Year
  Sex: Female

DRUGS (8)
  1. KCL [Concomitant]
     Active Substance: POTASSIUM CHLORIDE
     Dosage: 20 MG, 1X/DAY
  2. MAXZIDE [Concomitant]
     Active Substance: HYDROCHLOROTHIAZIDE\TRIAMTERENE
     Dosage: UNK, 1X/DAY
  3. LYRICA [Suspect]
     Active Substance: PREGABALIN
     Dosage: 75 MG, UNK
  4. NORVASC [Concomitant]
     Active Substance: AMLODIPINE BESYLATE
     Dosage: 5 DF, 1X/DAY
  5. DOXEPIN [Concomitant]
     Active Substance: DOXEPIN
     Dosage: 1 DF, 1X/DAY (HS)
  6. HYDROCODONE [Concomitant]
     Active Substance: HYDROCODONE
     Dosage: UNK, AS NEEDED
  7. REQUIP [Concomitant]
     Active Substance: ROPINIROLE HYDROCHLORIDE
     Dosage: 1 MG, 1X/DAY(HS)
  8. LYRICA [Suspect]
     Active Substance: PREGABALIN
     Dosage: 75 MG, 2X/DAY (HS)

REACTIONS (3)
  - Pain in extremity [Unknown]
  - Insomnia [Unknown]
  - Paraesthesia [Unknown]
